FAERS Safety Report 6696941-5 (Version None)
Quarter: 2010Q2

REPORT INFORMATION
  Report Type: 
  Country: None (occurrence: None)
  Receive Date: 20100426
  Receipt Date: 20100415
  Transmission Date: 20101027
  Serious: Yes (Other)
  Sender: FDA-Public Use
  Company Number: PHHY2010JP04705

PATIENT
  Age: 40 Year
  Sex: Female

DRUGS (7)
  1. TEGRETOL [Suspect]
     Indication: EPILEPSY
     Dosage: 500 MG, DAILY
     Route: 048
  2. VALPROIC ACID [Suspect]
     Indication: EPILEPSY
     Dosage: 850 MG, DAILY
     Route: 048
     Dates: start: 19940601
  3. THEO-DUR [Suspect]
     Indication: ASTHMA
     Dosage: 300 MG, DAILY
     Route: 048
     Dates: start: 20051101, end: 20090712
  4. PHENOBARBITAL TAB [Concomitant]
     Indication: EPILEPSY
     Dosage: 70 MG, UNK
     Route: 048
  5. FAMOTIDINE [Concomitant]
     Indication: GASTROOESOPHAGEAL REFLUX DISEASE
     Dosage: 20 MG, UNK
     Route: 048
  6. GASMOTIN [Concomitant]
     Indication: GASTROINTESTINAL MOTILITY DISORDER
     Dosage: 15 MG, UNK
     Route: 048
  7. ONON [Concomitant]
     Indication: ASTHMA
     Dosage: 300 MG, UNK
     Route: 048
     Dates: start: 20090626

REACTIONS (11)
  - BLOOD 1,25-DIHYDROXYCHOLECALCIFEROL DECREASED [None]
  - BLOOD ALKALINE PHOSPHATASE INCREASED [None]
  - BLOOD PARATHYROID HORMONE INCREASED [None]
  - BONE DISORDER [None]
  - COPPER DEFICIENCY [None]
  - CRYING [None]
  - FANCONI SYNDROME [None]
  - HYPOPHOSPHATAEMIA [None]
  - OSTEOMALACIA [None]
  - PAIN [None]
  - RENAL TUBULAR DISORDER [None]
